FAERS Safety Report 12594773 (Version 2)
Quarter: 2016Q3

REPORT INFORMATION
  Report Type: Spontaneous
  Country: RO (occurrence: RO)
  Receive Date: 20160726
  Receipt Date: 20160816
  Transmission Date: 20161109
  Serious: Yes (Hospitalization, Other)
  Sender: FDA-Public Use
  Company Number: RO-TAKEDA-2016MPI003892AA

PATIENT
  Age: 72 Year
  Sex: Male
  Weight: 74 kg

DRUGS (45)
  1. VELCADE [Suspect]
     Active Substance: BORTEZOMIB
     Dosage: 1 MG/M2, UNK
     Route: 058
  2. DEXAMETHASONE. [Suspect]
     Active Substance: DEXAMETHASONE
     Indication: PLASMA CELL MYELOMA
     Dosage: 20 MG, UNK
     Route: 042
     Dates: start: 20160415
  3. INDAPAMID [Concomitant]
     Active Substance: INDAPAMIDE
     Indication: CARDIAC FAILURE
     Dosage: 1.5 MG, QD
     Route: 048
     Dates: start: 20140513, end: 20160428
  4. ACICLOVIR [Concomitant]
     Active Substance: ACYCLOVIR
     Indication: PROPHYLAXIS
     Dosage: 400 MG, BID
     Route: 048
     Dates: start: 20160415
  5. ERYTHROPOIETIN [Concomitant]
     Active Substance: ERYTHROPOIETIN
     Indication: ERYTHROPOIESIS ABNORMAL
     Dosage: 40000 IU, UNK
     Route: 058
     Dates: start: 20160530
  6. ACETILCISTEINA [Concomitant]
     Active Substance: ACETYLCYSTEINE
     Indication: PNEUMONIA
     Dosage: 300 MG, BID
     Route: 055
     Dates: start: 20160509, end: 20160524
  7. CALCIUM GLUCONATE. [Concomitant]
     Active Substance: CALCIUM GLUCONATE
     Indication: LACERATION
     Dosage: 940 MG, BID
     Route: 042
     Dates: start: 20160429, end: 20160502
  8. PRADAXA [Concomitant]
     Active Substance: DABIGATRAN ETEXILATE MESYLATE
     Indication: ATRIAL FIBRILLATION
     Dosage: 110 MG, BID
     Route: 048
     Dates: start: 20140513, end: 20160429
  9. VENTOLIN [Concomitant]
     Active Substance: ALBUTEROL SULFATE
     Indication: PNEUMONIA
     Dosage: 50 MG, BID
     Route: 048
     Dates: start: 20160512, end: 20160524
  10. FLUCONAZOL [Concomitant]
     Active Substance: FLUCONAZOLE
     Indication: ANTIFUNGAL PROPHYLAXIS
     Dosage: 150 MG, BID
     Route: 048
     Dates: start: 20160512, end: 20160524
  11. VELCADE [Suspect]
     Active Substance: BORTEZOMIB
     Indication: PLASMA CELL MYELOMA
     Dosage: 1.9 MG, UNK
     Route: 058
     Dates: start: 20160415
  12. MILURIT [Concomitant]
     Active Substance: ALLOPURINOL
     Dosage: 300 UNK, UNK
     Route: 065
     Dates: start: 20160603, end: 20160612
  13. MOXIFLOXACIN. [Concomitant]
     Active Substance: MOXIFLOXACIN
     Indication: PNEUMONIA
     Dosage: 400 MG, UNK
     Route: 048
     Dates: start: 20160525, end: 20160603
  14. LORATADINA [Concomitant]
     Active Substance: LORATADINE
     Indication: PROPHYLAXIS
     Dosage: 10 MG, UNK
     Route: 048
     Dates: start: 20160511, end: 20160511
  15. MERONEM [Concomitant]
     Active Substance: MEROPENEM
     Indication: PNEUMONIA
     Dosage: 1000 MG, TID
     Route: 042
     Dates: start: 20160509, end: 20160517
  16. HYDROGEN PEROXIDE BELL [Concomitant]
     Indication: LACERATION
     Dosage: 50 ML, TID
     Route: 061
     Dates: start: 20160429, end: 20160512
  17. FITOMENADIONA [Concomitant]
     Indication: LACERATION
     Dosage: 20 MG, BID
     Route: 042
     Dates: start: 20160429, end: 20160502
  18. PREDNISONE. [Suspect]
     Active Substance: PREDNISONE
     Indication: PLASMA CELL MYELOMA
     Dosage: 60 MG/M2, UNK
     Route: 048
     Dates: start: 20160416
  19. QUAMATEL [Concomitant]
     Active Substance: FAMOTIDINE
     Indication: GASTRITIS PROPHYLAXIS
     Dosage: 20 MG, UNK
     Route: 042
     Dates: start: 20160415, end: 20160415
  20. DEXAMETHASONE. [Concomitant]
     Active Substance: DEXAMETHASONE
     Indication: PNEUMONIA
     Dosage: 8 MG, BID
     Route: 055
     Dates: start: 20160509, end: 20160517
  21. FRAXIPARINA [Concomitant]
     Active Substance: NADROPARIN CALCIUM
     Dosage: 5700 IU, UNK
     Route: 058
     Dates: start: 20160518, end: 20160524
  22. AMIKACIN [Concomitant]
     Active Substance: AMIKACIN
     Indication: PNEUMONIA
     Dosage: 500 MG, BID
     Route: 042
     Dates: start: 20160509, end: 20160515
  23. DARATUMUMAB [Suspect]
     Active Substance: DARATUMUMAB
     Indication: PLASMA CELL MYELOMA
     Dosage: 16 MG/KG, UNK
     Route: 042
     Dates: start: 20160415
  24. PERINDOPRIL [Suspect]
     Active Substance: PERINDOPRIL
     Indication: ESSENTIAL HYPERTENSION
     Dosage: 10 MG, QD
     Route: 048
     Dates: start: 20140513, end: 20160428
  25. TRAMADOL. [Concomitant]
     Active Substance: TRAMADOL
     Indication: BONE PAIN
     Dosage: 50 MG, BID
     Route: 048
     Dates: start: 20160321
  26. MILURIT [Concomitant]
     Active Substance: ALLOPURINOL
     Indication: HYPERURICAEMIA
     Dosage: 300 MG, UNK
     Route: 065
     Dates: start: 20160429, end: 20160502
  27. FUROSEMIDE W/SPIRONOLACTONE [Concomitant]
     Active Substance: FUROSEMIDE\SPIRONOLACTONE
     Indication: ESSENTIAL HYPERTENSION
     Dosage: UNK
     Route: 048
  28. CIPRINOL                           /00697202/ [Concomitant]
     Indication: TRACHEOBRONCHITIS
     Dosage: 300 MG, BID
     Route: 042
     Dates: start: 20160429, end: 20160508
  29. ETAMSILAT [Concomitant]
     Indication: LACERATION
     Dosage: 1000 MG, BID
     Route: 042
     Dates: start: 20160429, end: 20160502
  30. MIDODRINE [Concomitant]
     Active Substance: MIDODRINE
     Indication: ORTHOSTATIC HYPOTENSION
     Dosage: 2.5 MG, TID
     Route: 048
     Dates: start: 20160429, end: 20160508
  31. AMLODIPINE [Suspect]
     Active Substance: AMLODIPINE BESYLATE
     Indication: ESSENTIAL HYPERTENSION
     Dosage: 5 MG, QD
     Route: 048
     Dates: start: 20140513, end: 20160428
  32. MELPHALAN [Suspect]
     Active Substance: MELPHALAN
     Indication: PLASMA CELL MYELOMA
     Dosage: 9 MG/M2, UNK
     Route: 048
     Dates: start: 20160415
  33. CORYOL                             /00984501/ [Suspect]
     Active Substance: CARVEDILOL
     Indication: ESSENTIAL HYPERTENSION
     Dosage: 6.25 MG, BID
     Route: 048
     Dates: start: 20140513, end: 20160428
  34. OMEZ                               /00661201/ [Concomitant]
     Active Substance: OMEPRAZOLE
     Indication: GASTRITIS PROPHYLAXIS
     Dosage: 20 MG, QD
     Route: 048
     Dates: start: 20160416, end: 20160418
  35. CARVEDILOL. [Concomitant]
     Active Substance: CARVEDILOL
     Indication: ESSENTIAL HYPERTENSION
     Dosage: 6.25 MG, UNK
     Route: 048
     Dates: start: 20160525
  36. FILGRASTIM [Concomitant]
     Active Substance: FILGRASTIM
     Indication: NEUTROPENIA
     Dosage: 300 ?G, UNK
     Route: 058
     Dates: start: 20160509, end: 20160515
  37. FRAXIPARINA [Concomitant]
     Active Substance: NADROPARIN CALCIUM
     Indication: THROMBOSIS PROPHYLAXIS
     Dosage: 5700 IU, UNK
     Route: 058
     Dates: start: 20160511, end: 20160515
  38. PARACETAMOL [Concomitant]
     Active Substance: ACETAMINOPHEN
     Indication: PROPHYLAXIS
     Dosage: 10 MG, UNK
     Route: 048
     Dates: start: 20160511, end: 20160511
  39. INDAPAMID [Concomitant]
     Active Substance: INDAPAMIDE
     Indication: ESSENTIAL HYPERTENSION
     Dosage: 1.5 MG, UNK
     Route: 048
     Dates: start: 20160525
  40. ZOLEDRONIC ACID. [Concomitant]
     Active Substance: ZOLEDRONIC ACID
     Indication: MINERAL SUPPLEMENTATION
     Dosage: 4 MG, UNK
     Route: 042
     Dates: start: 20160418, end: 20160418
  41. TAZOCIN [Concomitant]
     Active Substance: PIPERACILLIN SODIUM\TAZOBACTAM SODIUM
     Indication: TRACHEOBRONCHITIS
     Dosage: 4500 MG, QID
     Route: 042
     Dates: start: 20160503, end: 20160508
  42. MOXIFLOXACIN. [Concomitant]
     Active Substance: MOXIFLOXACIN
     Indication: PNEUMONIA
     Dosage: 400 MG, UNK
     Route: 042
     Dates: start: 20160507, end: 20160522
  43. CEFOPERAZONE W/SULBACTAM [Concomitant]
     Active Substance: CEFOPERAZONE\SULBACTAM
     Indication: TRACHEOBRONCHITIS
     Dosage: 2000 MG, BID
     Route: 042
     Dates: start: 20160429, end: 20160502
  44. ALBUMIN [Concomitant]
     Active Substance: ALBUMIN HUMAN
     Indication: HYPOALBUMINAEMIA
     Dosage: 200 G, UNK
     Route: 042
     Dates: start: 20160509, end: 20160515
  45. FRAXIPARINA [Concomitant]
     Active Substance: NADROPARIN CALCIUM
     Dosage: 2850 IU, UNK
     Route: 058
     Dates: start: 20160516, end: 20160517

REACTIONS (13)
  - Pneumonia [Recovered/Resolved]
  - Pyrexia [Unknown]
  - Pleural effusion [Unknown]
  - Anaemia [Recovered/Resolved]
  - Neutropenia [Recovered/Resolved]
  - Diarrhoea [Unknown]
  - Hypoalbuminaemia [Unknown]
  - Tracheobronchitis [Unknown]
  - Laceration [Unknown]
  - Hyperuricaemia [Unknown]
  - Orthostatic hypotension [Recovered/Resolved]
  - Thrombocytopenia [Recovered/Resolved]
  - Bone pain [Unknown]

NARRATIVE: CASE EVENT DATE: 20160427
